FAERS Safety Report 8206765-5 (Version None)
Quarter: 2012Q1

REPORT INFORMATION
  Report Type: 
  Country: None (occurrence: None)
  Receive Date: 20120309
  Receipt Date: 20120301
  Transmission Date: 20120608
  Serious: Yes (Hospitalization)
  Sender: FDA-Public Use
  Company Number: WAES 1203USA00357

PATIENT
  Age: 73 Year
  Sex: Male

DRUGS (5)
  1. JANUVIA [Suspect]
     Indication: TYPE 2 DIABETES MELLITUS
     Dosage: 25 MG/DAILY, PO; 50 MG/DAILY, PO
     Route: 048
     Dates: start: 20110124, end: 20110307
  2. JANUVIA [Suspect]
     Indication: TYPE 2 DIABETES MELLITUS
     Dosage: 25 MG/DAILY, PO; 50 MG/DAILY, PO
     Route: 048
     Dates: start: 20110308, end: 20110620
  3. MEIACT [Concomitant]
  4. ACETAMINOPHEN [Concomitant]
  5. ACTOS [Concomitant]

REACTIONS (1)
  - BLADDER NEOPLASM [None]
